FAERS Safety Report 16427578 (Version 1)
Quarter: 2019Q2

REPORT INFORMATION
  Report Type: Spontaneous
  Country: US (occurrence: US)
  Receive Date: 20190613
  Receipt Date: 20190613
  Transmission Date: 20190711
  Serious: Yes (Hospitalization)
  Sender: FDA-Public Use
  Company Number: US-DSJP-DSU-2019-121278

PATIENT

DRUGS (7)
  1. WELCHOL [Suspect]
     Active Substance: COLESEVELAM HYDROCHLORIDE
     Indication: DIABETES MELLITUS
     Dosage: 1250 MG, QD
     Route: 048
     Dates: start: 2017
  2. FISH OIL [Suspect]
     Active Substance: FISH OIL
     Dosage: 1 DF
     Route: 048
  3. FISH OIL [Suspect]
     Active Substance: FISH OIL
     Indication: PRODUCT USED FOR UNKNOWN INDICATION
     Dosage: 2 DF
     Route: 048
  4. METFORMIN [Concomitant]
     Active Substance: METFORMIN HYDROCHLORIDE
     Indication: DIABETES MELLITUS
     Dosage: UNK
     Route: 065
  5. ASPERCREME                         /00021207/ [Concomitant]
     Active Substance: TROLAMINE SALICYLATE
     Indication: NEUROPATHY PERIPHERAL
     Dosage: UNK
     Route: 065
  6. VENLAFAXINE [Concomitant]
     Active Substance: VENLAFAXINE HYDROCHLORIDE
     Indication: NEUROPATHY PERIPHERAL
     Dosage: UNK
     Route: 065
  7. ASPIRIN                            /00002701/ [Concomitant]
     Active Substance: ASPIRIN
     Indication: PRODUCT USED FOR UNKNOWN INDICATION
     Dosage: 0.5 DF, QD
     Route: 048

REACTIONS (4)
  - Blood pressure fluctuation [Unknown]
  - Loss of consciousness [Recovered/Resolved]
  - Off label use [Not Recovered/Not Resolved]
  - Blood pressure orthostatic abnormal [Unknown]

NARRATIVE: CASE EVENT DATE: 2017
